FAERS Safety Report 24245914 (Version 2)
Quarter: 2024Q3

REPORT INFORMATION
  Report Type: Report from Study
  Country: US (occurrence: US)
  Receive Date: 20240824
  Receipt Date: 20240926
  Transmission Date: 20241016
  Serious: Yes (Other)
  Sender: NOVARTIS
  Company Number: US-002147023-NVSC2024US169092

PATIENT
  Age: 7 Year
  Sex: Male
  Weight: 29.8 kg

DRUGS (6)
  1. LAMPRENE [Suspect]
     Active Substance: CLOFAZIMINE
     Indication: Mycobacterium abscessus infection
     Dosage: 100 MG, UNKNOWN
     Route: 048
     Dates: start: 20240307
  2. LAMPRENE [Suspect]
     Active Substance: CLOFAZIMINE
     Indication: Dacryocystitis
     Dosage: 100 MG, UNKNOWN
     Route: 048
  3. LAMPRENE [Suspect]
     Active Substance: CLOFAZIMINE
     Dosage: 100 MG, UNKNOWN
     Route: 048
     Dates: end: 20240610
  4. BEDAQUILINE [Suspect]
     Active Substance: BEDAQUILINE
     Indication: Product used for unknown indication
     Dosage: UNK
     Route: 048
     Dates: end: 20240706
  5. AZITHROMYCIN [Suspect]
     Active Substance: AZITHROMYCIN
     Indication: Product used for unknown indication
     Dosage: UNK
     Route: 048
     Dates: end: 20240706
  6. AMOXICILLIN [Concomitant]
     Active Substance: AMOXICILLIN
     Indication: Product used for unknown indication
     Dosage: 500 MG, BID
     Route: 065
     Dates: start: 20240615, end: 20240619

REACTIONS (7)
  - Electrocardiogram QT prolonged [Recovered/Resolved]
  - Hepatic enzyme increased [Recovered/Resolved]
  - Skin discolouration [Recovered/Resolved]
  - Abdominal pain [Recovered/Resolved]
  - Vomiting [Recovered/Resolved]
  - Headache [Recovered/Resolved]
  - White blood cell count increased [Recovered/Resolved]

NARRATIVE: CASE EVENT DATE: 20240506
